FAERS Safety Report 8830071 (Version 1)
Quarter: 2012Q4

REPORT INFORMATION
  Report Type: 
  Country: US (occurrence: US)
  Receive Date: 20121008
  Receipt Date: 20121008
  Transmission Date: 20130627
  Serious: Yes (Hospitalization)
  Sender: FDA-Public Use
  Company Number: PHEH2012US019517

PATIENT
  Age: 58 Year
  Sex: Female

DRUGS (4)
  1. GILENYA [Suspect]
     Indication: MULTIPLE SCLEROSIS
     Dosage: 0.5 mg, QD
     Route: 048
  2. BACLOFEN [Concomitant]
     Dosage: UNK UKN, UNK
  3. FLUOXETINE [Concomitant]
     Dosage: UNK UKN, UNK
  4. NYSTATIN [Concomitant]
     Indication: ORAL CANDIDIASIS
     Dosage: UNK UKN, PRN

REACTIONS (2)
  - Convulsion [Unknown]
  - Loss of consciousness [Unknown]
